FAERS Safety Report 7017462-6 (Version None)
Quarter: 2010Q3

REPORT INFORMATION
  Report Type: 
  Country: None (occurrence: None)
  Receive Date: 20100928
  Receipt Date: 20100921
  Transmission Date: 20110219
  Serious: Yes (Other)
  Sender: FDA-Public Use
  Company Number: BR-PFIZER INC-2010120238

PATIENT
  Age: 34 Year
  Sex: Female
  Weight: 52 kg

DRUGS (2)
  1. FARLUTAL [Suspect]
     Indication: HORMONE REPLACEMENT THERAPY
     Dosage: UNK
     Route: 048
     Dates: start: 19930101
  2. PREMARIN [Suspect]
     Indication: HORMONE REPLACEMENT THERAPY
     Dosage: 1 DRAG??E DAILY
     Dates: start: 19930101

REACTIONS (1)
  - LARGE INTESTINE CARCINOMA [None]
